FAERS Safety Report 4509104-6 (Version None)
Quarter: 2004Q4

REPORT INFORMATION
  Report Type: 
  Country: None (occurrence: None)
  Receive Date: 20041025
  Receipt Date: 20031028
  Transmission Date: 20050328
  Serious: Yes (Other)
  Sender: FDA-Public Use
  Company Number: NSADSS2003024682

PATIENT
  Age: 71 Year
  Sex: Female
  Weight: 62.1428 kg

DRUGS (6)
  1. REMICADE [Suspect]
     Indication: RHEUMATOID ARTHRITIS
     Dosage: 400 MG, INTRAVENOUS DRIP
     Route: 041
     Dates: start: 20030212
  2. REMICADE [Suspect]
     Indication: RHEUMATOID ARTHRITIS
     Dosage: 400 MG, INTRAVENOUS DRIP
     Route: 041
     Dates: start: 20030326
  3. REMICADE [Suspect]
     Indication: RHEUMATOID ARTHRITIS
     Dosage: 400 MG, INTRAVENOUS DRIP
     Route: 041
     Dates: start: 20030521
  4. REMICADE [Suspect]
     Indication: RHEUMATOID ARTHRITIS
     Dosage: 400 MG, INTRAVENOUS DRIP
     Route: 041
     Dates: start: 20030704
  5. REMICADE [Suspect]
     Indication: RHEUMATOID ARTHRITIS
     Dosage: 400 MG, INTRAVENOUS DRIP
     Route: 041
     Dates: start: 20030815
  6. REMICADE [Suspect]
     Indication: RHEUMATOID ARTHRITIS
     Dosage: 400 MG, INTRAVENOUS DRIP
     Route: 041
     Dates: start: 20030919

REACTIONS (1)
  - CELLULITIS [None]
